FAERS Safety Report 17763307 (Version 7)
Quarter: 2020Q3

REPORT INFORMATION
  Report Type: Report from Study
  Country: None (occurrence: US)
  Receive Date: 20200509
  Receipt Date: 20200702
  Transmission Date: 20201102
  Serious: Yes (Hospitalization, Other)
  Sender: FDA-Public Use
  Company Number: US-ABBVIE-20K-163-3396504-00

PATIENT
  Age: 73 Year
  Sex: Female

DRUGS (22)
  1. ELIQUIS [Concomitant]
     Active Substance: APIXABAN
     Indication: PRODUCT USED FOR UNKNOWN INDICATION
     Dosage: 1 CAP
     Route: 048
  2. SEROQUEL [Concomitant]
     Active Substance: QUETIAPINE FUMARATE
     Indication: PRODUCT USED FOR UNKNOWN INDICATION
     Dosage: 1 TABLET
     Route: 048
  3. CALCIUM [Concomitant]
     Active Substance: CALCIUM
     Indication: PRODUCT USED FOR UNKNOWN INDICATION
     Dosage: 500/1250 MG
     Route: 048
  4. VITAMIN D2 [Concomitant]
     Active Substance: ERGOCALCIFEROL
     Indication: PRODUCT USED FOR UNKNOWN INDICATION
     Route: 048
  5. CRANBERRY. [Concomitant]
     Active Substance: CRANBERRY
     Indication: PRODUCT USED FOR UNKNOWN INDICATION
     Route: 048
  6. LEVOTHYROXINE. [Concomitant]
     Active Substance: LEVOTHYROXINE
     Indication: PRODUCT USED FOR UNKNOWN INDICATION
     Route: 048
  7. VITAMIN B12 [Concomitant]
     Active Substance: CYANOCOBALAMIN
     Indication: PRODUCT USED FOR UNKNOWN INDICATION
     Route: 048
  8. FLORASTOR [Concomitant]
     Active Substance: SACCHAROMYCES CEREVISIAE
     Indication: PRODUCT USED FOR UNKNOWN INDICATION
     Dosage: 3 CAPSULE
     Route: 048
  9. DUOPA [Suspect]
     Active Substance: CARBIDOPA\LEVODOPA
     Route: 050
     Dates: start: 20190506, end: 2020
  10. DONEPEZIL. [Concomitant]
     Active Substance: DONEPEZIL
     Indication: PRODUCT USED FOR UNKNOWN INDICATION
     Route: 048
  11. CLONAZEPAM. [Concomitant]
     Active Substance: CLONAZEPAM
     Indication: PRODUCT USED FOR UNKNOWN INDICATION
     Route: 048
  12. DUOPA [Suspect]
     Active Substance: CARBIDOPA\LEVODOPA
     Indication: PARKINSON^S DISEASE
     Route: 050
     Dates: start: 20190207, end: 2019
  13. DUOPA [Suspect]
     Active Substance: CARBIDOPA\LEVODOPA
     Route: 050
     Dates: start: 2019, end: 2019
  14. ATORVASTATIN [Concomitant]
     Active Substance: ATORVASTATIN
     Indication: PRODUCT USED FOR UNKNOWN INDICATION
     Route: 048
  15. FOLIC ACID. [Concomitant]
     Active Substance: FOLIC ACID
     Indication: PRODUCT USED FOR UNKNOWN INDICATION
     Route: 048
  16. DUOPA [Suspect]
     Active Substance: CARBIDOPA\LEVODOPA
     Route: 050
     Dates: start: 2020
  17. NITROFURANTOIN. [Concomitant]
     Active Substance: NITROFURANTOIN
     Indication: PRODUCT USED FOR UNKNOWN INDICATION
     Dosage: 1 CAP
     Route: 048
  18. DULOXETINE. [Concomitant]
     Active Substance: DULOXETINE
     Indication: PRODUCT USED FOR UNKNOWN INDICATION
     Route: 048
  19. RYTARY [Concomitant]
     Active Substance: CARBIDOPA\LEVODOPA
     Indication: PRODUCT USED FOR UNKNOWN INDICATION
     Dosage: 23.75?95 MG
     Route: 048
  20. VITAMIN D3 [Concomitant]
     Active Substance: CHOLECALCIFEROL
     Indication: PRODUCT USED FOR UNKNOWN INDICATION
     Route: 048
  21. DUOPA [Suspect]
     Active Substance: CARBIDOPA\LEVODOPA
     Route: 050
     Dates: start: 2020, end: 2020
  22. CREON [Concomitant]
     Active Substance: PANCRELIPASE AMYLASE\PANCRELIPASE LIPASE\PANCRELIPASE PROTEASE
     Indication: PRODUCT USED FOR UNKNOWN INDICATION
     Dosage: 39.5 TO 15,000/ 3?9.5?15K
     Route: 048

REACTIONS (14)
  - Incontinence [Not Recovered/Not Resolved]
  - Hypotension [Not Recovered/Not Resolved]
  - Device leakage [Unknown]
  - Device breakage [Unknown]
  - Encephalopathy [Unknown]
  - Thrombosis [Recovered/Resolved]
  - Unevaluable event [Unknown]
  - Oxygen saturation decreased [Not Recovered/Not Resolved]
  - Constipation [Unknown]
  - Hypophagia [Unknown]
  - Anxiety [Unknown]
  - Pneumonia aspiration [Not Recovered/Not Resolved]
  - Device dislocation [Unknown]
  - Diarrhoea [Unknown]

NARRATIVE: CASE EVENT DATE: 202005
